FAERS Safety Report 7556986-X (Version None)
Quarter: 2011Q2

REPORT INFORMATION
  Report Type: 
  Country: None (occurrence: None)
  Receive Date: 20110620
  Receipt Date: 20110607
  Transmission Date: 20111010
  Serious: Yes (Hospitalization)
  Sender: FDA-Public Use
  Company Number: US-ROCHE-707804

PATIENT

DRUGS (8)
  1. PACLITAXEL [Suspect]
     Indication: OVARIAN EPITHELIAL CANCER
     Dosage: OVER 1 HOUR ON DAY 1, 8 AND 15 FORM CYCLE 1 TO 6.
     Route: 042
     Dates: start: 20100302
  2. PACLITAXEL [Suspect]
     Dosage: PACLITAXEL: 135 MG/M2 IV OVER 3 HRS ON DAY 1.
     Route: 042
  3. CARBOPLATIN [Suspect]
     Indication: OVARIAN EPITHELIAL CANCER
     Dosage: DOSE:6 AUC ON DAY 1
     Route: 042
     Dates: start: 20100302
  4. HYDROMORPHONE HCL [Suspect]
     Route: 065
  5. CISPLATIN [Suspect]
     Indication: OVARIAN EPITHELIAL CANCER
     Dosage: 75 MGLM2 IP ON DAY 2
     Route: 033
     Dates: start: 20100302
  6. CIPROFLOXACIN [Concomitant]
  7. BEVACIZUMAB [Suspect]
     Indication: OVARIAN EPITHELIAL CANCER
     Dosage: OVER 30-90 MIN ON DAY 1 OF CYCLES 2-6 AND CYCLES 7-22 ON DAY 1
     Route: 042
     Dates: start: 20100302
  8. HYDROCODONE BITARTRATE + ACETAMINOPHEN [Suspect]
     Dosage: DRUG NAME REPORTED AS VICODIN
     Route: 065

REACTIONS (14)
  - BLOOD MAGNESIUM DECREASED [None]
  - NEUTROPHIL COUNT DECREASED [None]
  - CONSTIPATION [None]
  - NAUSEA [None]
  - VOMITING [None]
  - BLOOD CALCIUM DECREASED [None]
  - BLOOD SODIUM DECREASED [None]
  - BLOOD GLUCOSE DECREASED [None]
  - DUODENAL OBSTRUCTION [None]
  - HAEMOGLOBIN DECREASED [None]
  - LYMPHOCYTE COUNT DECREASED [None]
  - ABDOMINAL PAIN [None]
  - WHITE BLOOD CELL COUNT DECREASED [None]
  - FATIGUE [None]
